FAERS Safety Report 13734970 (Version 1)
Quarter: 2017Q3

REPORT INFORMATION
  Report Type: Spontaneous
  Country: US (occurrence: US)
  Receive Date: 20170710
  Receipt Date: 20170710
  Transmission Date: 20171127
  Serious: No
  Sender: FDA-Public Use
  Company Number: US-009507513-1706USA007770

PATIENT
  Sex: Female

DRUGS (1)
  1. KEYTRUDA [Suspect]
     Active Substance: PEMBROLIZUMAB
     Dosage: SECOND TREATMENT STARTED TWO WEEKS AFTER HER FIRST TREATMENT

REACTIONS (2)
  - Product use issue [Unknown]
  - Hypoaesthesia [Unknown]
